FAERS Safety Report 7590584-7 (Version None)
Quarter: 2011Q3

REPORT INFORMATION
  Report Type: 
  Country: None (occurrence: None)
  Receive Date: 20110705
  Receipt Date: 20110623
  Transmission Date: 20111222
  Serious: Yes (Hospitalization, Disabling, Other)
  Sender: FDA-Public Use
  Company Number: JP-PFIZER INC-2011106903

PATIENT
  Age: 79 Year
  Sex: Female
  Weight: 35 kg

DRUGS (3)
  1. CELECOXIB [Suspect]
     Indication: BACK PAIN
     Dosage: 100 MG, BID
     Route: 048
     Dates: start: 20100506, end: 20110201
  2. ELCITONIN [Concomitant]
     Indication: OSTEOPOROSIS
     Dosage: UNK
     Dates: start: 20100514, end: 20110105
  3. BONOTEO [Suspect]
     Indication: OSTEOPOROSIS
     Dosage: 1 MG, 1X/DAY
     Route: 048
     Dates: start: 20100514, end: 20110201

REACTIONS (1)
  - SUBARACHNOID HAEMORRHAGE [None]
